FAERS Safety Report 24085669 (Version 1)
Quarter: 2024Q3

REPORT INFORMATION
  Report Type: Spontaneous
  Country: FR (occurrence: None)
  Receive Date: 20240712
  Receipt Date: 20240712
  Transmission Date: 20241017
  Serious: Yes (Other)
  Sender: ASTRAZENECA
  Company Number: 2024A158579

PATIENT
  Age: 60 Year
  Sex: Female

DRUGS (7)
  1. QUETIAPINE [Suspect]
     Active Substance: QUETIAPINE
     Indication: Depression
  2. BROMAZEPAM [Suspect]
     Active Substance: BROMAZEPAM
  3. ALCOHOL [Suspect]
     Active Substance: ALCOHOL
     Dosage: ALCOHOL DRINK
  4. ARIPIPRAZOLE [Suspect]
     Active Substance: ARIPIPRAZOLE
     Indication: Depression
  5. PREGABALIN [Suspect]
     Active Substance: PREGABALIN
  6. DIAZEPAM [Suspect]
     Active Substance: DIAZEPAM
  7. ZOPICLONE [Suspect]
     Active Substance: ZOPICLONE
     Indication: Depression

REACTIONS (5)
  - Drug use disorder [Unknown]
  - Poisoning deliberate [Recovered/Resolved]
  - Somnolence [Recovered/Resolved]
  - Oxygen saturation decreased [Recovered/Resolved]
  - Hypotension [Recovered/Resolved]

NARRATIVE: CASE EVENT DATE: 20240118
